FAERS Safety Report 5746188-1 (Version None)
Quarter: 2008Q2

REPORT INFORMATION
  Report Type: 
  Country: None (occurrence: None)
  Receive Date: 20080522
  Receipt Date: 20080513
  Transmission Date: 20081010
  Serious: Yes (Hospitalization)
  Sender: FDA-Public Use
  Company Number: US-TYCO HEALTHCARE/MALLINCKRODT-T200800836

PATIENT

DRUGS (3)
  1. METHADOSE [Suspect]
     Indication: DRUG DEPENDENCE
     Dosage: 135 MG, QD
     Route: 048
  2. METHADOSE [Suspect]
     Dosage: 60 MG, QD
     Route: 048
  3. METOPROLOL TARTRATE [Concomitant]
     Indication: HYPERTENSION
     Dosage: 100 MG, QD

REACTIONS (9)
  - CONVULSION [None]
  - ELECTROCARDIOGRAM QT PROLONGED [None]
  - EXTRASYSTOLES [None]
  - LOSS OF CONSCIOUSNESS [None]
  - PULSE ABSENT [None]
  - SYNCOPE [None]
  - TORSADE DE POINTES [None]
  - TREMOR [None]
  - VOMITING [None]
